FAERS Safety Report 4594136-2 (Version None)
Quarter: 2005Q1

REPORT INFORMATION
  Report Type: 
  Country: None (occurrence: None)
  Receive Date: 20050301
  Receipt Date: 20050204
  Transmission Date: 20050727
  Serious: Yes (Hospitalization)
  Sender: FDA-Public Use
  Company Number: US-GLAXOSMITHKLINE-A0543958A

PATIENT
  Age: 67 Year
  Sex: Male

DRUGS (5)
  1. COREG [Suspect]
     Indication: CARDIAC FAILURE CONGESTIVE
     Dosage: 6.25MG TWICE PER DAY
     Route: 048
  2. ASPIRIN [Concomitant]
  3. ALTACE [Concomitant]
  4. LESCOL [Concomitant]
  5. PLAVIX [Concomitant]

REACTIONS (2)
  - CARDIAC DISORDER [None]
  - CHEST DISCOMFORT [None]
